FAERS Safety Report 4803976-3 (Version None)
Quarter: 2005Q4

REPORT INFORMATION
  Report Type: 
  Country: None (occurrence: None)
  Receive Date: 20051019
  Receipt Date: 20050504
  Transmission Date: 20060501
  Serious: Yes (Congenital Anomaly, Other)
  Sender: FDA-Public Use
  Company Number: GB-SANOFI-SYNTHELABO-A01200503081

PATIENT
  Sex: Male
  Weight: 2.32 kg

DRUGS (7)
  1. DEPAKOTE [Suspect]
     Indication: DEPRESSION
     Dosage: 1500 MG
     Route: 064
     Dates: start: 19990101, end: 20000529
  2. ZOLPIDEM TARTRATE [Suspect]
     Dosage: 10 MG
     Route: 064
     Dates: start: 19990101, end: 20000529
  3. RAMIPRIL [Concomitant]
     Dosage: 5 MG
     Route: 064
     Dates: start: 19990101
  4. REBOXETINE [Concomitant]
     Dosage: 12 MG
     Route: 064
  5. LIOTHYRONINE [Concomitant]
     Dosage: 25 MCG
     Route: 064
  6. METHYLDOPA [Concomitant]
     Dosage: UNK
     Route: 064
  7. NIFEDIPINE [Concomitant]
     Dosage: UNK
     Route: 064

REACTIONS (4)
  - CAESAREAN SECTION [None]
  - DEVELOPMENTAL DELAY [None]
  - DRUG EXPOSURE DURING PREGNANCY [None]
  - PREMATURE BABY [None]
